FAERS Safety Report 13284944 (Version 1)
Quarter: 2017Q1

REPORT INFORMATION
  Report Type: Spontaneous
  Country: US (occurrence: US)
  Receive Date: 20170301
  Receipt Date: 20170301
  Transmission Date: 20170428
  Serious: No
  Sender: FDA-Public Use
  Company Number: None

PATIENT
  Age: 37 Year
  Sex: Male
  Weight: 90 kg

DRUGS (4)
  1. LAMOTRIGINE. [Suspect]
     Active Substance: LAMOTRIGINE
     Route: 048
     Dates: start: 20170127, end: 20170211
  2. CLONAZEPAM. [Concomitant]
     Active Substance: CLONAZEPAM
  3. DULEXOTINE [Concomitant]
  4. AMBIEN [Concomitant]
     Active Substance: ZOLPIDEM TARTRATE

REACTIONS (4)
  - Mood altered [None]
  - Anger [None]
  - Disturbance in attention [None]
  - Irritability [None]

NARRATIVE: CASE EVENT DATE: 20170211
